FAERS Safety Report 9767684 (Version 1)
Quarter: 2013Q3

REPORT INFORMATION
  Report Type: Spontaneous
  Country: IN (occurrence: None)
  Receive Date: 20130828
  Receipt Date: 20130828
  Transmission Date: 20140515
  Serious: Yes (Death, Hospitalization)
  Sender: FDA-Public Use
  Company Number: FK201303389

PATIENT
  Sex: Female

DRUGS (2)
  1. METHOTREXATE (MANUFACTURER UNKNOWN) (METHOTREXATE) (METHOTREXATE) [Suspect]
     Indication: CHORIOCARCINOMA
     Route: 030
  2. LEUCOVORIN (FOLINIC ACID) [Concomitant]

REACTIONS (10)
  - Pancytopenia [None]
  - Mucosal inflammation [None]
  - Mouth ulceration [None]
  - Pharyngeal ulceration [None]
  - Dysphagia [None]
  - Trismus [None]
  - Generalised oedema [None]
  - Vomiting [None]
  - Cardiac arrest [None]
  - Toxicity to various agents [None]
